FAERS Safety Report 7996404 (Version 3)
Quarter: 2013Q1

REPORT INFORMATION
  Report Type: Spontaneous
  Country: US (occurrence: US)
  Receive Date: 20110617
  Receipt Date: 20130222
  Transmission Date: 20140127
  Serious: Yes (Hospitalization)
  Sender: FDA-Public Use
  Company Number: US-ASTRAZENECA-2011SE35298

PATIENT
  Age: 53 Year
  Sex: Female

DRUGS (4)
  1. CRESTOR [Suspect]
     Route: 048
  2. SEROQUEL [Suspect]
     Route: 048
  3. BLOOD PRESSURE MEDICATION [Suspect]
     Route: 065
  4. NEXIUM [Suspect]
     Route: 048

REACTIONS (3)
  - Hypertension [Unknown]
  - Mood swings [Unknown]
  - Drug hypersensitivity [Unknown]
